FAERS Safety Report 17493671 (Version 1)
Quarter: 2020Q1

REPORT INFORMATION
  Report Type: Spontaneous
  Country: US (occurrence: US)
  Receive Date: 20200221
  Receipt Date: 20200221
  Transmission Date: 20200409
  Serious: Yes (Hospitalization)
  Sender: FDA-Public Use
  Company Number: None

PATIENT
  Age: 63 Year
  Sex: Male

DRUGS (18)
  1. LISINOPRIL. [Concomitant]
     Active Substance: LISINOPRIL
  2. TAMSULOSIN [Concomitant]
     Active Substance: TAMSULOSIN
  3. CIPROFLOXACIN. [Concomitant]
     Active Substance: CIPROFLOXACIN
  4. LANSOPRAZOLE. [Concomitant]
     Active Substance: LANSOPRAZOLE
  5. POLYETH GLYC [Concomitant]
     Active Substance: POLYETHYLENE GLYCOLS
  6. SOFTCLIX MIS LANCETS [Concomitant]
  7. URSODIOL. [Concomitant]
     Active Substance: URSODIOL
  8. BASAGLAR [Concomitant]
     Active Substance: INSULIN GLARGINE
  9. BD PEN NEEDL MIS [Concomitant]
  10. LORAZEPAM. [Concomitant]
     Active Substance: LORAZEPAM
  11. NOVOLOG [Concomitant]
     Active Substance: INSULIN ASPART
  12. PULMOZYME [Suspect]
     Active Substance: DORNASE ALFA
     Indication: CYSTIC FIBROSIS
     Dosage: ?          OTHER STRENGTH:2.5MG, 2.5ML;OTHER DOSE:1 VIAL (2.5MG);?
     Route: 055
     Dates: start: 20180802
  13. ACCU-CHECK TES AVIVA [Concomitant]
  14. AZITHROMYCIN ANHYDROUS. [Concomitant]
     Active Substance: AZITHROMYCIN ANHYDROUS
  15. TRIKAFTA [Concomitant]
     Active Substance: ELEXACAFTOR\IVACAFTOR\TEZACAFTOR
  16. CITALOPRAM [Concomitant]
     Active Substance: CITALOPRAM HYDROBROMIDE
  17. SIMVASTATIN. [Concomitant]
     Active Substance: SIMVASTATIN
  18. TOBI NEB [Concomitant]

REACTIONS (1)
  - Cholelithiasis [None]

NARRATIVE: CASE EVENT DATE: 20200220
